FAERS Safety Report 6501679-0 (Version None)
Quarter: 2009Q4

REPORT INFORMATION
  Report Type: 
  Country: None (occurrence: None)
  Receive Date: 20091216
  Receipt Date: 20091209
  Transmission Date: 20100525
  Serious: Yes (Hospitalization)
  Sender: FDA-Public Use
  Company Number: DK-TEVA-199940ISR

PATIENT
  Sex: Female

DRUGS (6)
  1. SIMVASTATIN [Suspect]
     Indication: HYPERCHOLESTEROLAEMIA
     Route: 048
     Dates: start: 20050101, end: 20090508
  2. IOMEPROL [Interacting]
     Indication: SCAN WITH CONTRAST
     Route: 042
     Dates: start: 20090508, end: 20090508
  3. FUROSEMIDE [Concomitant]
     Indication: FLUID RETENTION
     Route: 048
     Dates: start: 20030101
  4. ALFACALCIDOL [Concomitant]
     Indication: VITAMIN D DEFICIENCY
     Dates: start: 20080808
  5. FERROUS SULFATE TAB [Concomitant]
     Route: 048
     Dates: start: 20070427
  6. RAMIPRIL [Concomitant]
     Indication: HYPERTENSION
     Route: 048
     Dates: start: 20070727

REACTIONS (2)
  - DRUG INTERACTION [None]
  - RHABDOMYOLYSIS [None]
